FAERS Safety Report 17372543 (Version 4)
Quarter: 2021Q2

REPORT INFORMATION
  Report Type: Report from Study
  Country: None (occurrence: US)
  Receive Date: 20200205
  Receipt Date: 20210531
  Transmission Date: 20210716
  Serious: Yes (Hospitalization)
  Sender: FDA-Public Use
  Company Number: US-ABBVIE-20K-163-3261778-00

PATIENT

DRUGS (1)
  1. IMBRUVICA [Suspect]
     Active Substance: IBRUTINIB
     Indication: PRODUCT USED FOR UNKNOWN INDICATION
     Route: 065

REACTIONS (2)
  - Right ventricular failure [Recovered/Resolved with Sequelae]
  - Right ventricular failure [Not Recovered/Not Resolved]

NARRATIVE: CASE EVENT DATE: 20191219
